FAERS Safety Report 9500555 (Version 1)
Quarter: 2013Q3

REPORT INFORMATION
  Report Type: Report from Study
  Country: US (occurrence: US)
  Receive Date: 20130905
  Receipt Date: 20130905
  Transmission Date: 20140515
  Serious: Yes (Other)
  Sender: FDA-Public Use
  Company Number: US-US-EMD SERONO, INC.-7234866

PATIENT
  Sex: Female

DRUGS (2)
  1. REBIF [Suspect]
     Indication: MULTIPLE SCLEROSIS
     Route: 058
     Dates: start: 20130403, end: 201308
  2. REBIF [Suspect]
     Route: 058
     Dates: start: 20130826

REACTIONS (2)
  - Kidney infection [Unknown]
  - Injection site erythema [Not Recovered/Not Resolved]
